FAERS Safety Report 15462736 (Version 3)
Quarter: 2018Q4

REPORT INFORMATION
  Report Type: Report from Study
  Country: US (occurrence: US)
  Receive Date: 20181004
  Receipt Date: 20181107
  Transmission Date: 20190204
  Serious: No
  Sender: FDA-Public Use
  Company Number: PHHY2018US115125

PATIENT
  Sex: Male

DRUGS (1)
  1. COSENTYX [Suspect]
     Active Substance: SECUKINUMAB
     Indication: PSORIASIS
     Dosage: 300 MG, QMO
     Route: 058

REACTIONS (6)
  - Dry skin [Unknown]
  - Acne [Unknown]
  - Nasopharyngitis [Unknown]
  - Malaise [Unknown]
  - Dry throat [Unknown]
  - Injection site pain [Unknown]
